FAERS Safety Report 4416454-0 (Version None)
Quarter: 2004Q3

REPORT INFORMATION
  Report Type: 
  Country: None (occurrence: None)
  Receive Date: 20040802
  Receipt Date: 20040719
  Transmission Date: 20050211
  Serious: Yes (Other)
  Sender: FDA-Public Use
  Company Number: FR-JNJFOC-20040606675

PATIENT
  Age: 81 Year
  Sex: Male
  Weight: 65 kg

DRUGS (3)
  1. REMINYL [Suspect]
     Indication: DEMENTIA ALZHEIMER'S TYPE
     Dosage: 2 CP A DAY
     Dates: start: 20040401, end: 20040601
  2. CORDARONE (AMIODARONE HYDROCHLRIDE) [Concomitant]
  3. VERAPAMIL [Concomitant]

REACTIONS (3)
  - CYTOLYTIC HEPATITIS [None]
  - GALLBLADDER ENLARGEMENT [None]
  - HEPATITIS B [None]
